FAERS Safety Report 25934353 (Version 2)
Quarter: 2025Q4

REPORT INFORMATION
  Report Type: Report from Study
  Country: US (occurrence: US)
  Receive Date: 20251017
  Receipt Date: 20251217
  Transmission Date: 20260118
  Serious: Yes (Other)
  Sender: ABBVIE
  Company Number: US-ABBVIE-6506618

PATIENT
  Sex: Male

DRUGS (2)
  1. SKYRIZI [Suspect]
     Active Substance: RISANKIZUMAB-RZAA
     Indication: Crohn^s disease
     Route: 058
  2. SKYRIZI [Suspect]
     Active Substance: RISANKIZUMAB-RZAA
     Route: 058

REACTIONS (7)
  - Ostomy bag placement [Unknown]
  - Scab [Unknown]
  - Hyperhidrosis [Unknown]
  - Hernia [Unknown]
  - Therapeutic product effect incomplete [Not Recovered/Not Resolved]
  - Post procedural haemorrhage [Unknown]
  - Colostomy closure [Recovering/Resolving]
